FAERS Safety Report 6664692-9 (Version None)
Quarter: 2010Q2

REPORT INFORMATION
  Report Type: 
  Country: None (occurrence: None)
  Receive Date: 20100401
  Receipt Date: 20100315
  Transmission Date: 20101027
  Serious: Yes (Other)
  Sender: FDA-Public Use
  Company Number: CA-MERCK-1003USA02349

PATIENT
  Age: 74 Year
  Sex: Female

DRUGS (4)
  1. COZAAR [Suspect]
     Route: 048
  2. PERCODAN-DEMI [Suspect]
     Route: 048
  3. PLAVIX [Suspect]
     Route: 048
  4. CLORAZEPATE DIPOTASSIUM [Concomitant]
     Route: 065

REACTIONS (6)
  - EPISTAXIS [None]
  - MIGRAINE [None]
  - MOUTH HAEMORRHAGE [None]
  - PARAESTHESIA [None]
  - SWELLING [None]
  - TRANSIENT ISCHAEMIC ATTACK [None]
